FAERS Safety Report 25035839 (Version 1)
Quarter: 2025Q1

REPORT INFORMATION
  Report Type: Spontaneous
  Country: AT (occurrence: AT)
  Receive Date: 20250304
  Receipt Date: 20250304
  Transmission Date: 20250408
  Serious: Yes (Other)
  Sender: NOVARTIS
  Company Number: AT-002147023-NVSC2025AT033371

PATIENT
  Sex: Female

DRUGS (1)
  1. LETROZOLE [Suspect]
     Active Substance: LETROZOLE
     Indication: Ovarian cancer
     Route: 065

REACTIONS (2)
  - Ovarian cancer recurrent [Unknown]
  - Off label use [Unknown]
